FAERS Safety Report 10541282 (Version 6)
Quarter: 2016Q1

REPORT INFORMATION
  Report Type: Report from Study
  Country: US (occurrence: US)
  Receive Date: 20141024
  Receipt Date: 20160128
  Transmission Date: 20160525
  Serious: Yes (Disabling, Other)
  Sender: FDA-Public Use
  Company Number: US-SANOFI-AVENTIS-2013SA077411

PATIENT
  Age: 63 Year
  Sex: Female

DRUGS (7)
  1. DEXILANT [Concomitant]
     Active Substance: DEXLANSOPRAZOLE
  2. AUBAGIO [Suspect]
     Active Substance: TERIFLUNOMIDE
     Indication: MULTIPLE SCLEROSIS
     Route: 048
     Dates: start: 20130713
  3. TRAMADOL. [Concomitant]
     Active Substance: TRAMADOL
     Dosage: FREQUENCY: 2-3 TIMES A DAY
  4. PREDNISONE. [Concomitant]
     Active Substance: PREDNISONE
     Dates: start: 20150226, end: 20150309
  5. PREDNISONE. [Concomitant]
     Active Substance: PREDNISONE
     Dates: start: 20150410
  6. Z PACK [Concomitant]
     Active Substance: AZITHROMYCIN DIHYDRATE
  7. MOBIC [Concomitant]
     Active Substance: MELOXICAM

REACTIONS (39)
  - Feeling abnormal [Not Recovered/Not Resolved]
  - Multiple sclerosis relapse [Unknown]
  - Weight increased [Recovering/Resolving]
  - Gait disturbance [Recovered/Resolved]
  - Pain [Recovering/Resolving]
  - Tremor [Recovering/Resolving]
  - Multiple sclerosis relapse [Recovering/Resolving]
  - Anxiety [Not Recovered/Not Resolved]
  - Hypersensitivity [Recovering/Resolving]
  - Impaired driving ability [Recovering/Resolving]
  - Asthenia [Recovering/Resolving]
  - Paraesthesia [Not Recovered/Not Resolved]
  - Paraesthesia [Recovered/Resolved]
  - Choking [Recovering/Resolving]
  - Dizziness [Not Recovered/Not Resolved]
  - Muscle spasms [Recovering/Resolving]
  - Grip strength decreased [Recovering/Resolving]
  - Alopecia [Recovered/Resolved]
  - Limb discomfort [Recovering/Resolving]
  - Influenza like illness [Recovered/Resolved]
  - Hepatic enzyme increased [Recovering/Resolving]
  - Listless [Unknown]
  - Walking aid user [Unknown]
  - Abdominal discomfort [Not Recovered/Not Resolved]
  - Muscle spasms [Not Recovered/Not Resolved]
  - Cough [Recovering/Resolving]
  - Nausea [Recovering/Resolving]
  - Hypertension [Not Recovered/Not Resolved]
  - Urinary incontinence [Not Recovered/Not Resolved]
  - Fatigue [Not Recovered/Not Resolved]
  - Vomiting [Recovering/Resolving]
  - Sensory loss [Recovering/Resolving]
  - Headache [Recovered/Resolved]
  - Vertigo [Not Recovered/Not Resolved]
  - Energy increased [Not Recovered/Not Resolved]
  - Hair colour changes [Unknown]
  - Decreased immune responsiveness [Recovering/Resolving]
  - Diarrhoea [Not Recovered/Not Resolved]
  - Paraesthesia [Recovering/Resolving]

NARRATIVE: CASE EVENT DATE: 201601
